FAERS Safety Report 18102663 (Version 1)
Quarter: 2020Q3

REPORT INFORMATION
  Report Type: Spontaneous
  Country: US (occurrence: US)
  Receive Date: 20200803
  Receipt Date: 20200803
  Transmission Date: 20201103
  Serious: Yes (Death)
  Sender: FDA-Public Use
  Company Number: US-ROCHE-2652015

PATIENT
  Sex: Male

DRUGS (18)
  1. LUCENTIS [Suspect]
     Active Substance: RANIBIZUMAB
     Indication: TYPE 2 DIABETES MELLITUS
     Dosage: INTO THE LEFT EYE FOR 24 MONTHS
     Route: 065
  2. AZELASTINE. [Concomitant]
     Active Substance: AZELASTINE HYDROCHLORIDE
  3. PANTOPRAZOLE [Concomitant]
     Active Substance: PANTOPRAZOLE
  4. CEFUROXIME. [Concomitant]
     Active Substance: CEFUROXIME
  5. LANTUS SOLOSTAR [Concomitant]
     Active Substance: INSULIN GLARGINE
  6. PREDNISOLONE. [Concomitant]
     Active Substance: PREDNISOLONE
  7. WARFARIN [Concomitant]
     Active Substance: WARFARIN
  8. LOSARTAN POTASSIUM. [Concomitant]
     Active Substance: LOSARTAN POTASSIUM
  9. AMOXIL [Concomitant]
     Active Substance: AMOXICILLIN
  10. FLURBIPROFEN. [Concomitant]
     Active Substance: FLURBIPROFEN
  11. LUCENTIS [Suspect]
     Active Substance: RANIBIZUMAB
     Indication: DIABETIC RETINOPATHY
  12. OXCARBAZEPIN [Concomitant]
     Active Substance: OXCARBAZEPINE
  13. FAMCICLOVIR. [Concomitant]
     Active Substance: FAMCICLOVIR
  14. APAP [Concomitant]
     Active Substance: ACETAMINOPHEN
  15. DONEPEZIL. [Concomitant]
     Active Substance: DONEPEZIL
  16. FLUOXETINE [Concomitant]
     Active Substance: FLUOXETINE HYDROCHLORIDE
  17. METOPROLOL. [Concomitant]
     Active Substance: METOPROLOL
  18. HYDROCHLOROTH [Concomitant]
     Active Substance: HYDROCHLOROTHIAZIDE

REACTIONS (1)
  - Death [Fatal]
